FAERS Safety Report 6731000-4 (Version None)
Quarter: 2010Q2

REPORT INFORMATION
  Report Type: 
  Country: None (occurrence: None)
  Receive Date: 20100518
  Receipt Date: 20100506
  Transmission Date: 20101027
  Serious: Yes (Hospitalization, Congenital Anomaly)
  Sender: FDA-Public Use
  Company Number: SE-BAYER-201010570GPV

PATIENT
  Sex: Female
  Weight: 1.6 kg

DRUGS (2)
  1. ADALAT OROS VIA MOTHER [Suspect]
     Indication: HYPERTENSION
     Dosage: 20 MG TABLET
     Route: 064
     Dates: start: 20091101, end: 20091101
  2. TRANDATE VIA MOTHER [Concomitant]
     Indication: HYPERTENSION
     Dosage: 100 MG TABLET THREE TIMES DAILY
     Route: 064
     Dates: end: 20091101

REACTIONS (2)
  - CAESAREAN SECTION [None]
  - GROWTH RETARDATION [None]
